FAERS Safety Report 4750341-3 (Version None)
Quarter: 2005Q3

REPORT INFORMATION
  Report Type: 
  Country: None (occurrence: None)
  Receive Date: 20050818
  Receipt Date: 20050811
  Transmission Date: 20060218
  Serious: Yes (Death, Other)
  Sender: FDA-Public Use
  Company Number: 2005JP001615

PATIENT
  Age: 41 Year
  Sex: Male

DRUGS (3)
  1. PROGRAF [Suspect]
     Indication: LIVER TRANSPLANT
  2. LAMIVUDINE [Suspect]
  3. MYCOPHENOLATE MOFETIL(MYCOPHENOLATE MOFETIL) [Suspect]

REACTIONS (7)
  - ALANINE AMINOTRANSFERASE INCREASED [None]
  - BLOOD BILIRUBIN INCREASED [None]
  - CHOLANGIOLITIS [None]
  - HAEMOLYSIS [None]
  - PLEURAL EFFUSION [None]
  - PULMONARY TUBERCULOSIS [None]
  - THROMBOTIC THROMBOCYTOPENIC PURPURA [None]
